FAERS Safety Report 24039067 (Version 1)
Quarter: 2024Q3

REPORT INFORMATION
  Report Type: Spontaneous
  Country: GB (occurrence: GB)
  Receive Date: 20240702
  Receipt Date: 20240702
  Transmission Date: 20241017
  Serious: Yes (Other)
  Sender: TEVA
  Company Number: None

PATIENT
  Age: 8 Month

DRUGS (4)
  1. OSELTAMIVIR [Suspect]
     Active Substance: OSELTAMIVIR
     Dosage: OM, DURATION: 4 DAYS
     Route: 065
     Dates: start: 20240103, end: 20240106
  2. QUETIAPINE [Concomitant]
     Active Substance: QUETIAPINE
  3. ZOPICLONE [Concomitant]
     Active Substance: ZOPICLONE
     Dosage: TIME INTERVAL: AS NECESSARY
  4. MIRTAZAPINE [Concomitant]
     Active Substance: MIRTAZAPINE
     Dosage: AT NIGHT

REACTIONS (1)
  - Thrombocytopenia [Unknown]
